FAERS Safety Report 4560669-8 (Version None)
Quarter: 2005Q1

REPORT INFORMATION
  Report Type: 
  Country: None (occurrence: None)
  Receive Date: 20050124
  Receipt Date: 20050124
  Transmission Date: 20050727
  Serious: Yes (Hospitalization)
  Sender: FDA-Public Use
  Company Number: None

PATIENT
  Sex: Female

DRUGS (1)
  1. TAXOTERE [Suspect]
     Indication: CERVIX CARCINOMA RECURRENT
     Dosage: 120.8 MG Q 21 DAY, IV
     Route: 042
     Dates: start: 20050107

REACTIONS (3)
  - BODY TEMPERATURE INCREASED [None]
  - ENTEROCUTANEOUS FISTULA [None]
  - NEUTROPENIA [None]
